FAERS Safety Report 11129015 (Version 5)
Quarter: 2016Q3

REPORT INFORMATION
  Report Type: Report from Study
  Country: CA (occurrence: CA)
  Receive Date: 20150521
  Receipt Date: 20160818
  Transmission Date: 20161109
  Serious: No
  Sender: FDA-Public Use
  Company Number: PHHY2015CA061026

PATIENT
  Age: 46 Year
  Sex: Female

DRUGS (6)
  1. PANTOLOC//PANTOPRAZOLE SODIUM SESQUIHYDRATE [Concomitant]
     Active Substance: PANTOPRAZOLE SODIUM
     Indication: PRODUCT USED FOR UNKNOWN INDICATION
     Dosage: 40 MG, BID, FOR 2 MONTHS
     Route: 065
  2. IMOVANE [Concomitant]
     Active Substance: ZOPICLONE
     Indication: PRODUCT USED FOR UNKNOWN INDICATION
     Dosage: UNK UKN, PRN
     Route: 065
  3. TASIGNA [Suspect]
     Active Substance: NILOTINIB
     Indication: CHRONIC MYELOID LEUKAEMIA
     Dosage: 300 MG, BID
     Route: 048
     Dates: start: 20150429
  4. IRON [Concomitant]
     Active Substance: IRON
     Indication: PRODUCT USED FOR UNKNOWN INDICATION
     Dosage: 300 MG, QD
     Route: 065
  5. ELAVIL [Concomitant]
     Active Substance: AMITRIPTYLINE HYDROCHLORIDE
     Indication: PRODUCT USED FOR UNKNOWN INDICATION
     Route: 065
  6. ZANTAC [Concomitant]
     Active Substance: RANITIDINE HYDROCHLORIDE
     Indication: LIVER FUNCTION TEST ABNORMAL
     Route: 065

REACTIONS (8)
  - Liver function test abnormal [Unknown]
  - Dry skin [Unknown]
  - Pain in extremity [Unknown]
  - Pain [Recovered/Resolved]
  - Abasia [Unknown]
  - Muscle spasms [Unknown]
  - Bone pain [Unknown]
  - Blood phosphorus decreased [Unknown]

NARRATIVE: CASE EVENT DATE: 20150623
